FAERS Safety Report 5731314-0 (Version None)
Quarter: 2008Q2

REPORT INFORMATION
  Report Type: 
  Country: None (occurrence: None)
  Receive Date: 20080505
  Receipt Date: 20080422
  Transmission Date: 20081010
  Serious: Yes (Other)
  Sender: FDA-Public Use
  Company Number: 2007324553

PATIENT
  Age: 23 Year
  Sex: Male
  Weight: 106.5953 kg

DRUGS (1)
  1. BENGAY ULTRA STRENGTH PATCH (MENTHOL) [Suspect]
     Indication: NECK PAIN
     Dosage: 1 PATCH AT NIGHT ONCE WEEKLY (1 IN 1 WK), TOPICAL
     Route: 061
     Dates: start: 20060101

REACTIONS (3)
  - APPLICATION SITE DISCOLOURATION [None]
  - APPLICATION SITE IRRITATION [None]
  - APPLICATION SITE VESICLES [None]
